FAERS Safety Report 14168832 (Version 3)
Quarter: 2018Q3

REPORT INFORMATION
  Report Type: Spontaneous
  Country: US (occurrence: US)
  Receive Date: 20171108
  Receipt Date: 20180913
  Transmission Date: 20181010
  Serious: Yes (Hospitalization, Other)
  Sender: FDA-Public Use
  Company Number: US-PFIZER INC-2017475143

PATIENT
  Age: 64 Year
  Sex: Male
  Weight: 93 kg

DRUGS (14)
  1. OMEPRAZOLE. [Concomitant]
     Active Substance: OMEPRAZOLE
     Indication: BARRETT^S OESOPHAGUS
     Dosage: UNK
     Dates: start: 201601
  2. BABY ASPIRIN [Concomitant]
     Active Substance: ASPIRIN
     Indication: FAMILIAL RISK FACTOR
  3. LOSARTAN. [Concomitant]
     Active Substance: LOSARTAN
     Indication: BLOOD PRESSURE ABNORMAL
     Dosage: UNK
     Dates: start: 201602
  4. BABY ASPIRIN [Concomitant]
     Active Substance: ASPIRIN
     Indication: BLOOD PRESSURE ABNORMAL
     Dosage: UNK
     Dates: start: 2016
  5. XELJANZ XR [Suspect]
     Active Substance: TOFACITINIB CITRATE
     Dosage: 11 MG, 1X/DAY
     Dates: start: 201710
  6. LEVOTHYROXINE. [Concomitant]
     Active Substance: LEVOTHYROXINE
     Indication: THYROID DISORDER
     Dosage: UNK
     Dates: start: 200910
  7. TURMERIC [Concomitant]
     Active Substance: HERBALS\TURMERIC
     Indication: RHEUMATOID ARTHRITIS
     Dosage: UNK
     Dates: start: 201707
  8. HYDROMORPHONE [Concomitant]
     Active Substance: HYDROMORPHONE
     Indication: BACK PAIN
     Dosage: UNK
     Dates: start: 201410
  9. HYDROMORPHONE [Concomitant]
     Active Substance: HYDROMORPHONE
     Indication: PAIN
  10. AMITRIPTYLINE HCL [Concomitant]
     Active Substance: AMITRIPTYLINE
     Indication: SLEEP DISORDER
     Dosage: UNK
     Dates: start: 201707
  11. METHYLPREDNISOLONE. [Concomitant]
     Active Substance: METHYLPREDNISOLONE
     Indication: INFLAMMATION
     Dosage: 4 MG, 2X/DAY, 2 MG IN AM AND 2 MG AT NIGHT, CUT IN HALF
     Route: 048
     Dates: start: 201306
  12. XELJANZ XR [Suspect]
     Active Substance: TOFACITINIB CITRATE
     Indication: RHEUMATOID ARTHRITIS
     Dosage: 11 MG, DAILY
     Route: 048
     Dates: start: 201608
  13. PREDNISOLONE. [Concomitant]
     Active Substance: PREDNISOLONE
     Dosage: 2 MG, UNK
  14. FOLIC ACID. [Concomitant]
     Active Substance: FOLIC ACID
     Dosage: UNK
     Dates: start: 2016

REACTIONS (6)
  - Drug ineffective [Recovered/Resolved]
  - Abdominal pain upper [Recovered/Resolved]
  - Gastric dilatation [Recovering/Resolving]
  - Abdominal pain lower [Recovered/Resolved]
  - Dysuria [Recovering/Resolving]
  - Weight decreased [Unknown]

NARRATIVE: CASE EVENT DATE: 2016
